FAERS Safety Report 5291396-X (Version None)
Quarter: 2007Q2

REPORT INFORMATION
  Report Type: 
  Country: None (occurrence: None)
  Receive Date: 20070402
  Receipt Date: 20070319
  Transmission Date: 20071010
  Serious: Yes (Other)
  Sender: FDA-Public Use
  Company Number: FSC_0078_2007

PATIENT
  Sex: Male

DRUGS (2)
  1. ISOPTIN [Suspect]
     Indication: ARRHYTHMIA
  2. FLECAINIDE ACETATE [Concomitant]

REACTIONS (3)
  - ARRHYTHMIA [None]
  - FOOD INTERACTION [None]
  - PALPITATIONS [None]
